FAERS Safety Report 9387485 (Version 1)
Quarter: 2013Q2

REPORT INFORMATION
  Report Type: Spontaneous
  Country: CA (occurrence: None)
  Receive Date: 20130626
  Receipt Date: 20130626
  Transmission Date: 20140414
  Serious: Yes (Other)
  Sender: FDA-Public Use
  Company Number: 2013036535

PATIENT
  Sex: 0

DRUGS (9)
  1. CYTOGAM [Suspect]
     Route: 042
  2. ANTITHYMOCYTE IMMUNEGLOBULIN [Suspect]
  3. MYCOPHENOLATE MOFETIL (MYCOPHENOLATE MOFETIL) [Suspect]
     Dosage: 2 EVERY 1 DAY
  4. PREDNISONE (PREDNISONE) [Suspect]
  5. RITUXAN [Suspect]
  6. SOLIRIS [Suspect]
     Route: 042
  7. TACROLIMUS [Suspect]
     Dosage: 2 EVERY 1 DAY
     Route: 048
  8. IMMUNOGLOBULIN [Concomitant]
  9. CORTICOSTEROIDS [Concomitant]

REACTIONS (3)
  - Renal graft loss [None]
  - Polyomavirus-associated nephropathy [None]
  - Nephrectomy [None]
